FAERS Safety Report 5152171-X (Version None)
Quarter: 2006Q4

REPORT INFORMATION
  Report Type: 
  Country: None (occurrence: None)
  Receive Date: 20061116
  Receipt Date: 20061006
  Transmission Date: 20070319
  Serious: Yes (Hospitalization)
  Sender: FDA-Public Use
  Company Number: 464669

PATIENT
  Age: 73 Year
  Sex: Male

DRUGS (12)
  1. ARTIST [Suspect]
     Indication: MYOCARDIAL INFARCTION
     Dosage: 5MG TWICE PER DAY
     Route: 048
     Dates: start: 20060726, end: 20060823
  2. PANALDINE [Suspect]
     Indication: MYOCARDIAL INFARCTION
     Dosage: 100MG TWICE PER DAY
     Route: 048
     Dates: start: 20060725, end: 20060726
  3. FAMOTIDINE [Suspect]
     Indication: DRUG USE FOR UNKNOWN INDICATION
     Route: 065
  4. FAMOTIDINE [Suspect]
     Route: 048
  5. ASPIRIN [Suspect]
  6. ENALAPRIL MALEATE [Suspect]
  7. NICORANDIL [Suspect]
  8. PAZUFLOXACIN MESILATE [Suspect]
  9. GASTER D [Concomitant]
  10. MONOAMMONIUM GLYCYRRHIZINATE [Concomitant]
     Dates: start: 20060908
  11. AMINOACETIC ACID [Concomitant]
     Dates: start: 20060908
  12. L-CYSTEINE [Concomitant]
     Dates: start: 20060908

REACTIONS (4)
  - ALANINE AMINOTRANSFERASE INCREASED [None]
  - ASPARTATE AMINOTRANSFERASE INCREASED [None]
  - HEPATIC INFILTRATION EOSINOPHILIC [None]
  - LIVER DISORDER [None]
